FAERS Safety Report 8708764 (Version 2)
Quarter: 2013Q1

REPORT INFORMATION
  Report Type: Spontaneous
  Country: US (occurrence: None)
  Receive Date: 20120717
  Receipt Date: 20121026
  Transmission Date: 20140127
  Serious: Yes (Hospitalization, Other)
  Sender: FDA-Public Use
  Company Number: 2012PROUSA01613

PATIENT
  Age: 71 Year
  Sex: Male
  Weight: 78.5 kg

DRUGS (3)
  1. PROVENGE [Suspect]
     Indication: PROSTATE CANCER METASTATIC
     Dosage: 250 ML, UNK, INTRAVENOUS
     Route: 042
     Dates: start: 20120618, end: 20120618
  2. ENALAPRIL MALEATE [Concomitant]
  3. METFORMIN HYDROCHLORIDE [Concomitant]

REACTIONS (15)
  - Myocardial infarction [None]
  - Wheezing [None]
  - Dyspnoea [None]
  - Pyrexia [None]
  - Infusion related reaction [None]
  - Rash generalised [None]
  - Chills [None]
  - Ventricular fibrillation [None]
  - Cardiac arrest [None]
  - Oesophageal candidiasis [None]
  - Anaemia [None]
  - Coronary artery occlusion [None]
  - Coronary artery thrombosis [None]
  - Coronary artery disease [None]
  - Ventricular hypokinesia [None]
